FAERS Safety Report 23692055 (Version 1)
Quarter: 2024Q2

REPORT INFORMATION
  Report Type: Spontaneous
  Country: CH (occurrence: None)
  Receive Date: 20240401
  Receipt Date: 20240401
  Transmission Date: 20240716
  Serious: No
  Sender: FDA-Public Use
  Company Number: CH-ROCHE-3530241

PATIENT
  Age: 18 Year

DRUGS (1)
  1. OCREVUS [Suspect]
     Active Substance: OCRELIZUMAB
     Indication: Product used for unknown indication
     Dosage: INFUSION ON: 17/JAN/2023 AND LAST INFUSION ON 10/JUL/2023
     Route: 065
     Dates: start: 20220707

REACTIONS (8)
  - Erythema [Unknown]
  - Nausea [Unknown]
  - Hot flush [Unknown]
  - Dyspnoea [Unknown]
  - Palpitations [Unknown]
  - Rash [Unknown]
  - Purpura [Unknown]
  - Streptococcal infection [Unknown]

NARRATIVE: CASE EVENT DATE: 20230118
